FAERS Safety Report 4284731-2 (Version None)
Quarter: 2004Q1

REPORT INFORMATION
  Report Type: 
  Country: None (occurrence: None)
  Receive Date: 20040130
  Receipt Date: 20040115
  Transmission Date: 20041129
  Serious: Yes (Hospitalization)
  Sender: FDA-Public Use
  Company Number: EWC031036780

PATIENT
  Age: 60 Year
  Sex: Female

DRUGS (3)
  1. ZYPREXA [Suspect]
     Indication: SCHIZOAFFECTIVE DISORDER
     Dosage: 15 MG/DAY
     Dates: start: 20020401, end: 20031023
  2. LORAZEPAM [Concomitant]
  3. CARBAMAZEPINE [Concomitant]

REACTIONS (9)
  - BLOOD GLUCOSE INCREASED [None]
  - COMA [None]
  - HEPATIC ENZYME INCREASED [None]
  - INFLUENZA [None]
  - KETOACIDOSIS [None]
  - MYALGIA [None]
  - PYREXIA [None]
  - RENAL FAILURE [None]
  - TREATMENT NONCOMPLIANCE [None]
